FAERS Safety Report 19548998 (Version 1)
Quarter: 2021Q3

REPORT INFORMATION
  Report Type: Spontaneous
  Country: US (occurrence: US)
  Receive Date: 20210715
  Receipt Date: 20210715
  Transmission Date: 20211014
  Serious: Yes (Other)
  Sender: FDA-Public Use
  Company Number: None

PATIENT
  Age: 53 Year
  Sex: Female
  Weight: 53.07 kg

DRUGS (9)
  1. LORSARTAN [Concomitant]
     Active Substance: LOSARTAN
  2. VITAMIN D [Concomitant]
     Active Substance: VITAMIN D NOS
  3. CALCIUM [Concomitant]
     Active Substance: CALCIUM
  4. FAMOTIDINE. [Concomitant]
     Active Substance: FAMOTIDINE
  5. ZYRTEC [Concomitant]
     Active Substance: CETIRIZINE HYDROCHLORIDE
  6. ALBUTERAL [Concomitant]
     Active Substance: ALBUTEROL
  7. TOPIRAMATE. [Suspect]
     Active Substance: TOPIRAMATE
     Indication: TRIGEMINAL NEURALGIA
     Dosage: ?          QUANTITY:25 MG MILLIGRAM(S);?
     Route: 048
     Dates: start: 20210614, end: 20210616
  8. FLONASE [Concomitant]
     Active Substance: FLUTICASONE PROPIONATE
  9. VITAMIN C [Concomitant]
     Active Substance: ASCORBIC ACID

REACTIONS (18)
  - Nausea [None]
  - Gait disturbance [None]
  - Dysarthria [None]
  - Pain [None]
  - Muscle twitching [None]
  - Lip blister [None]
  - Abdominal pain upper [None]
  - Headache [None]
  - Vision blurred [None]
  - Facial pain [None]
  - Neck pain [None]
  - Crying [None]
  - Oral mucosal blistering [None]
  - Hypoaesthesia [None]
  - Rash [None]
  - Tachyphrenia [None]
  - Dizziness [None]
  - Arthralgia [None]

NARRATIVE: CASE EVENT DATE: 20210614
